FAERS Safety Report 5212115-9 (Version None)
Quarter: 2007Q1

REPORT INFORMATION
  Report Type: 
  Country: None (occurrence: None)
  Receive Date: 20070118
  Receipt Date: 20070111
  Transmission Date: 20070707
  Serious: Yes (Disabling)
  Sender: FDA-Public Use
  Company Number: US-ROCHE-473887

PATIENT
  Age: 26 Year
  Sex: Female
  Weight: 79.4 kg

DRUGS (12)
  1. ACCUTANE [Suspect]
     Route: 065
     Dates: start: 19810615, end: 19820615
  2. ACCUTANE [Suspect]
     Route: 065
     Dates: start: 19880615
  3. PROZAC [Concomitant]
     Dates: start: 19960615
  4. SEROQUEL [Concomitant]
     Indication: ANXIETY
     Dates: start: 20010615
  5. LABETALOL HCL [Concomitant]
     Dosage: REPORTED AS LABETOLOL.
  6. COLAZAL [Concomitant]
     Dates: start: 20050615
  7. ZOLOFT [Concomitant]
     Dates: start: 19960615
  8. CELEXA [Concomitant]
     Dates: start: 19960615
  9. PREDNISONE [Concomitant]
  10. ANTIBIOTIKA [Concomitant]
  11. ATIVAN [Concomitant]
     Indication: ANXIETY
     Dates: start: 20010615
  12. XANAX [Concomitant]
     Dosage: REPORTED AS XANAX.
     Dates: start: 20050615

REACTIONS (24)
  - ANAEMIA [None]
  - ANXIETY [None]
  - AORTIC ANEURYSM [None]
  - ARTHRITIS [None]
  - BACK PAIN [None]
  - CHRONIC FATIGUE SYNDROME [None]
  - COLITIS ULCERATIVE [None]
  - CROHN'S DISEASE [None]
  - CYSTITIS [None]
  - DEPERSONALISATION [None]
  - DEPRESSION [None]
  - FATIGUE [None]
  - FLIGHT OF IDEAS [None]
  - HYPERTENSION [None]
  - INFLAMMATORY BOWEL DISEASE [None]
  - INSOMNIA [None]
  - INTESTINAL HAEMORRHAGE [None]
  - LUNG NEOPLASM [None]
  - NECK INJURY [None]
  - OBSESSIVE-COMPULSIVE DISORDER [None]
  - PALPITATIONS [None]
  - PANIC ATTACK [None]
  - PHOBIA [None]
  - SUICIDAL IDEATION [None]
